FAERS Safety Report 24243418 (Version 1)
Quarter: 2024Q3

REPORT INFORMATION
  Report Type: Spontaneous
  Country: CN (occurrence: CN)
  Receive Date: 20240823
  Receipt Date: 20240823
  Transmission Date: 20241016
  Serious: Yes (Other)
  Sender: BAXTER
  Company Number: None

PATIENT
  Age: 31 Year
  Sex: Male
  Weight: 50 kg

DRUGS (3)
  1. CYCLOPHOSPHAMIDE [Suspect]
     Active Substance: CYCLOPHOSPHAMIDE
     Indication: Lip and/or oral cavity cancer
     Dosage: 0.7 G, ONE TIME IN ONE DAY, DILUTED WITH APPROXIMATELY 25 ML OF 0.9% SODIUM CHLORIDE, ROUTE: ARTERIA
     Route: 050
     Dates: start: 20240726, end: 20240726
  2. SODIUM CHLORIDE [Suspect]
     Active Substance: SODIUM CHLORIDE
     Indication: Medication dilution
     Dosage: 25 ML (APPROXIMATELY), ONE TIME IN ONE DAY, USED TO DILUTE 0.7 G OF CYCLOPHOSPHAMIDE, ROUTE: ARTERIA
     Route: 050
     Dates: start: 20240726, end: 20240726
  3. CARBOPLATIN [Suspect]
     Active Substance: CARBOPLATIN
     Indication: Lip and/or oral cavity cancer
     Dosage: 400 MG, ONE TIME IN ONE DAY
     Route: 008
     Dates: start: 20240726, end: 20240726

REACTIONS (3)
  - Hypotension [Recovered/Resolved]
  - Chest discomfort [Recovering/Resolving]
  - Nausea [Recovering/Resolving]

NARRATIVE: CASE EVENT DATE: 20240726
